FAERS Safety Report 5377218-7 (Version None)
Quarter: 2007Q2

REPORT INFORMATION
  Report Type: 
  Country: None (occurrence: None)
  Receive Date: 20070629
  Receipt Date: 20070629
  Transmission Date: 20071010
  Serious: Yes (Other)
  Sender: FDA-Public Use
  Company Number: None

PATIENT
  Age: 25 Year
  Sex: Female
  Weight: 90.7194 kg

DRUGS (1)
  1. MUCINEX DM [Suspect]
     Dosage: 1-2 TABS 12 HRS PO
     Route: 048
     Dates: start: 20070125, end: 20070208

REACTIONS (2)
  - NEPHROLITHIASIS [None]
  - URINE ODOUR ABNORMAL [None]
